FAERS Safety Report 10008940 (Version 1)
Quarter: 2014Q1

REPORT INFORMATION
  Report Type: Spontaneous
  Country: US (occurrence: US)
  Receive Date: 20140313
  Receipt Date: 20140313
  Transmission Date: 20141002
  Serious: No
  Sender: FDA-Public Use
  Company Number: US-INCYTE CORPORATION-2012IN001099

PATIENT
  Sex: Male

DRUGS (1)
  1. JAKAFI [Suspect]
     Indication: MYELOID LEUKAEMIA
     Dosage: 10 MG, BID
     Route: 048
     Dates: start: 20120330

REACTIONS (2)
  - Drug ineffective for unapproved indication [Not Recovered/Not Resolved]
  - Disease progression [Not Recovered/Not Resolved]
